FAERS Safety Report 9152446 (Version 1)
Quarter: 2013Q1

REPORT INFORMATION
  Report Type: Spontaneous
  Country: GB (occurrence: GB)
  Receive Date: 20130308
  Receipt Date: 20130308
  Transmission Date: 20140127
  Serious: Yes (Hospitalization)
  Sender: FDA-Public Use
  Company Number: GB-ELI_LILLY_AND_COMPANY-GB201303001237

PATIENT
  Age: 43 Year
  Sex: Female

DRUGS (2)
  1. EXENATIDE [Suspect]
     Dosage: UNK UNK, UNKNOWN
  2. HUMULIN N [Concomitant]
     Indication: DIABETES MELLITUS
     Dosage: 39 U, BID
     Dates: start: 201210

REACTIONS (2)
  - Dyspnoea [Not Recovered/Not Resolved]
  - Mobility decreased [Not Recovered/Not Resolved]
